FAERS Safety Report 5967998-1 (Version None)
Quarter: 2008Q4

REPORT INFORMATION
  Report Type: 
  Country: None (occurrence: None)
  Receive Date: 20081121
  Receipt Date: 20081121
  Transmission Date: 20090506
  Serious: Yes (Other)
  Sender: FDA-Public Use
  Company Number: None

PATIENT
  Sex: Male
  Weight: 99.7913 kg

DRUGS (2)
  1. SEROQUEL [Suspect]
     Indication: BIPOLAR DISORDER
     Dosage: 300MG 1 X PER DAY PO
     Route: 048
     Dates: start: 20000815, end: 20081120
  2. SEROQUEL [Suspect]
     Indication: SCHIZOPHRENIA
     Dosage: 300MG 1 X PER DAY PO
     Route: 048
     Dates: start: 20000815, end: 20081120

REACTIONS (4)
  - DIABETES MELLITUS [None]
  - INCREASED APPETITE [None]
  - PAIN [None]
  - VISUAL ACUITY REDUCED [None]
